FAERS Safety Report 5045081-X (Version None)
Quarter: 2006Q2

REPORT INFORMATION
  Report Type: 
  Country: None (occurrence: None)
  Receive Date: 20060601
  Receipt Date: 20060310
  Transmission Date: 20061013
  Serious: No
  Sender: FDA-Public Use
  Company Number: US200603003879

PATIENT
  Age: 41 Year
  Sex: Female

DRUGS (1)
  1. CYMBALTA [Suspect]
     Indication: DRUG USE FOR UNKNOWN INDICATION
     Dosage: 60 MG, DAILY (1/D), ORAL
     Route: 048
     Dates: start: 20041116, end: 20051113

REACTIONS (3)
  - CARNITINE DECREASED [None]
  - VITAMIN D DECREASED [None]
  - WEIGHT INCREASED [None]
